FAERS Safety Report 6461096-9 (Version None)
Quarter: 2009Q4

REPORT INFORMATION
  Report Type: 
  Country: None (occurrence: None)
  Receive Date: 20091130
  Receipt Date: 20091119
  Transmission Date: 20100525
  Serious: Yes (Hospitalization)
  Sender: FDA-Public Use
  Company Number: B0608225A

PATIENT
  Sex: Male

DRUGS (6)
  1. WELLBUTRIN SR [Suspect]
     Indication: DEPRESSION
     Dosage: 150MG PER DAY
     Route: 048
     Dates: start: 20030908, end: 20040217
  2. ALPRAZOLAM [Concomitant]
     Dates: start: 20030714
  3. VALPROATE SODIUM [Concomitant]
     Dates: start: 20030714, end: 20040217
  4. ZOLPIDEM [Concomitant]
     Dates: start: 20030714, end: 20040217
  5. PANCREATINE [Concomitant]
     Dates: start: 20030324, end: 20040217
  6. LAMOTRIGINE [Concomitant]
     Dates: start: 20040210, end: 20040217

REACTIONS (3)
  - BIPOLAR DISORDER [None]
  - HYPOMANIA [None]
  - PNEUMONIA [None]
